FAERS Safety Report 13301914 (Version 1)
Quarter: 2017Q1

REPORT INFORMATION
  Report Type: Report from Study
  Country: ES (occurrence: ES)
  Receive Date: 20170307
  Receipt Date: 20170307
  Transmission Date: 20170428
  Serious: Yes (Hospitalization)
  Sender: FDA-Public Use
  Company Number: ES-GLAXOSMITHKLINE-ES2017029678

PATIENT
  Age: 58 Year
  Sex: Male

DRUGS (4)
  1. SALBUTAMOL SULPHATE [Suspect]
     Active Substance: ALBUTEROL SULFATE
     Indication: BRONCHOSPASM
     Dosage: 1-1-1-1
     Route: 055
     Dates: start: 20161006, end: 20161011
  2. URBASON [Suspect]
     Active Substance: METHYLPREDNISOLONE
     Indication: BRONCHOSPASM
     Dosage: 2-2-2
     Route: 048
     Dates: start: 20161006, end: 20161011
  3. AUGMENTINE TABLET [Concomitant]
     Indication: RESPIRATORY TRACT INFECTION
     Dosage: 1-1-1
     Route: 048
     Dates: start: 20161006, end: 20161011
  4. RILUZOL [Concomitant]
     Indication: AMYOTROPHIC LATERAL SCLEROSIS
     Dosage: 1-0-1
     Route: 048
     Dates: start: 20110918

REACTIONS (1)
  - Hyponatraemia [Recovered/Resolved]

NARRATIVE: CASE EVENT DATE: 20161012
